FAERS Safety Report 6894589-0 (Version None)
Quarter: 2010Q3

REPORT INFORMATION
  Report Type: 
  Country: None (occurrence: None)
  Receive Date: 20100802
  Receipt Date: 20100721
  Transmission Date: 20110219
  Serious: Yes (Hospitalization)
  Sender: FDA-Public Use
  Company Number: PHHY2010US48481

PATIENT
  Sex: Female

DRUGS (28)
  1. EXELON [Suspect]
     Indication: DEMENTIA ALZHEIMER'S TYPE
     Dosage: 4.6 MG TWICE PER DAY
     Route: 062
     Dates: start: 20100505, end: 20100603
  2. EXELON [Suspect]
     Dosage: 9.5 MG QD
     Route: 062
     Dates: start: 20100604, end: 20100614
  3. METFORMIN [Concomitant]
     Dosage: 500 MG  TWO TABLET TWICE DAILY
     Dates: start: 20090508
  4. METFORMIN [Concomitant]
     Dosage: 500 MG  ONE TABLET TWICE DAILY
     Route: 048
     Dates: start: 20090206
  5. ZESTRIL [Concomitant]
     Dosage: 20 MG TWICE A DAY
  6. LIPITOR [Concomitant]
     Dosage: 10 MG, QD
     Route: 048
     Dates: start: 20080808
  7. LIPITOR [Concomitant]
     Dosage: 10 MG, QD
     Dates: start: 20090307
  8. AMARYL [Concomitant]
     Dosage: 2 MG
     Route: 048
     Dates: start: 20090206
  9. AMARYL [Concomitant]
     Dosage: 2 MG DAILY
     Dates: start: 20100205
  10. IMODIUM [Concomitant]
     Indication: DIARRHOEA
  11. OMEPRAZOLE [Concomitant]
     Dosage: 20 MG
  12. ACTONEL [Concomitant]
     Dosage: 35 MG WEEKLY
     Route: 048
     Dates: start: 20080926
  13. ACTONEL [Concomitant]
     Dosage: 25 MG WEEKLY
     Route: 048
     Dates: start: 20080102
  14. ACTONEL [Concomitant]
     Dosage: 150 MG MONTHLY
     Route: 048
     Dates: start: 20081107
  15. ACTONEL [Concomitant]
     Dosage: 150 MG MONTHLY
     Route: 048
     Dates: start: 20090206
  16. FOLBIC [Concomitant]
     Dosage: 1 TABLET
     Route: 048
     Dates: start: 20100604
  17. BACTRIM [Concomitant]
     Dosage: 1 DF, BID
     Route: 048
     Dates: start: 20080102
  18. BACTRIM [Concomitant]
     Dosage: 800 MG-160 MG (BID)
     Route: 048
     Dates: start: 20100604
  19. AMOXYL [Concomitant]
     Dosage: 875 MG
     Dates: start: 20081107
  20. AMOXYL [Concomitant]
     Dosage: 500 MG
     Route: 048
     Dates: start: 20090206
  21. FLONASE [Concomitant]
  22. NORVASC [Concomitant]
     Dosage: 5 MG TABLET DAILY
     Route: 048
  23. PRINIVIL [Concomitant]
     Dosage: 20 MG
     Route: 048
     Dates: start: 20081107
  24. HYDROCHLOROTHIAZIDE [Concomitant]
     Dosage: 25 MG, QD
     Dates: start: 20080808
  25. HYDROCHLOROTHIAZIDE [Concomitant]
     Dosage: 25 MG
     Dates: start: 20081107
  26. NASACORT [Concomitant]
  27. ELOCON [Concomitant]
     Dosage: ONE BID
  28. NASONEX [Concomitant]
     Dosage: UNK
     Dates: start: 20080102

REACTIONS (6)
  - HYPONATRAEMIA [None]
  - HYPOPHAGIA [None]
  - NAUSEA [None]
  - URINARY TRACT INFECTION [None]
  - VITAMIN B12 DEFICIENCY [None]
  - VOMITING [None]
